FAERS Safety Report 8238314 (Version 2)
Quarter: 2020Q3

REPORT INFORMATION
  Report Type: Spontaneous
  Country: JP (occurrence: JP)
  Receive Date: 20111109
  Receipt Date: 20111123
  Transmission Date: 20201105
  Serious: Yes (Other)
  Sender: FDA-Public Use
  Company Number: US-WATSON-2011-18639

PATIENT
  Age: 60 Year
  Sex: Male

DRUGS (6)
  1. DIAZEPAM. [Suspect]
     Active Substance: DIAZEPAM
     Indication: ANAESTHESIA
  2. EPHEDRINE. [Suspect]
     Active Substance: EPHEDRINE
     Indication: ANAESTHESIA
  3. VECURONIUM BROMIDE. [Suspect]
     Active Substance: VECURONIUM BROMIDE
     Indication: ANAESTHESIA
  4. ATROPINE. [Suspect]
     Active Substance: ATROPINE
     Indication: ANAESTHESIA
  5. FENTANYL. [Suspect]
     Active Substance: FENTANYL
     Indication: ANAESTHESIA
     Dosage: FENTANYL?BUPIVACAINE 0.125% AT 20 UG?HR (MINUS 1) (TOTAL OF 89 MG)
     Route: 008
  6. PROPOFOL. [Suspect]
     Active Substance: PROPOFOL
     Indication: ANAESTHESIA

REACTIONS (2)
  - Bradycardia [Unknown]
  - Hypotension [Unknown]
